FAERS Safety Report 6447420-1 (Version None)
Quarter: 2009Q4

REPORT INFORMATION
  Report Type: 
  Country: None (occurrence: None)
  Receive Date: 20091119
  Receipt Date: 20091116
  Transmission Date: 20100525
  Serious: Yes (Other)
  Sender: FDA-Public Use
  Company Number: US-RB-015280-09

PATIENT
  Age: 21 Year
  Sex: Male

DRUGS (2)
  1. SUBOXONE [Suspect]
     Dosage: FREQUENCY  UNKNOWN
     Route: 060
     Dates: end: 20090501
  2. SUBOXONE [Suspect]
     Dosage: DOSING AND FREQUENCY INFORMATION IS UNKNOWN
     Route: 065

REACTIONS (12)
  - ANGER [None]
  - COLD SWEAT [None]
  - DECREASED APPETITE [None]
  - DIARRHOEA [None]
  - DRUG WITHDRAWAL SYNDROME [None]
  - HOMICIDAL IDEATION [None]
  - HYPERHIDROSIS [None]
  - INSOMNIA [None]
  - RETCHING [None]
  - RHINORRHOEA [None]
  - SUICIDAL IDEATION [None]
  - TREMOR [None]
